FAERS Safety Report 5684657-3 (Version None)
Quarter: 2008Q1

REPORT INFORMATION
  Report Type: 
  Country: None (occurrence: None)
  Receive Date: 20080328
  Receipt Date: 20070524
  Transmission Date: 20080703
  Serious: Yes (Death, Hospitalization)
  Sender: FDA-Public Use
  Company Number: US-BRISTOL-MYERS SQUIBB COMPANY-13768619

PATIENT
  Age: 86 Year
  Sex: Male
  Weight: 111 kg

DRUGS (5)
  1. ERBITUX [Suspect]
     Indication: RECTAL CANCER METASTATIC
     Route: 042
     Dates: start: 20070416, end: 20070416
  2. TYLENOL (CAPLET) [Concomitant]
     Indication: PREMEDICATION
     Route: 048
  3. BENADRYL [Concomitant]
     Indication: PREMEDICATION
     Route: 042
  4. DECADRON [Concomitant]
     Indication: PREMEDICATION
     Route: 042
  5. ALOXI [Concomitant]
     Indication: PREMEDICATION
     Route: 042

REACTIONS (5)
  - ANAPHYLACTIC REACTION [None]
  - CARDIAC ARREST [None]
  - OBSTRUCTIVE AIRWAYS DISORDER [None]
  - RESPIRATORY ARREST [None]
  - VENTRICULAR TACHYCARDIA [None]
